FAERS Safety Report 24160042 (Version 1)
Quarter: 2024Q3

REPORT INFORMATION
  Report Type: Spontaneous
  Country: IN (occurrence: IN)
  Receive Date: 20240801
  Receipt Date: 20240801
  Transmission Date: 20241016
  Serious: Yes (Other)
  Sender: STRIDES
  Company Number: IN-STRIDES ARCOLAB LIMITED-2024SP009387

PATIENT
  Sex: Female

DRUGS (6)
  1. ALBUTEROL [Suspect]
     Active Substance: ALBUTEROL
     Indication: Endocardial fibroelastosis
     Dosage: UNK (PATIENT^S MOTHER RECEIVED 4 MILLIGRAM/DAY)
     Route: 064
  2. DEXAMETHASONE [Suspect]
     Active Substance: DEXAMETHASONE
     Indication: Endocardial fibroelastosis
     Dosage: UNK (PATIENT^S MOTHER RECEIVED6 MG/DAY)
     Route: 064
  3. DEXAMETHASONE [Suspect]
     Active Substance: DEXAMETHASONE
     Dosage: UNK (PATIENT^S MOTHER RECEIVED 1 MILLIGRAM/DAY), TAPERED
     Route: 064
  4. HYDROXYCHLOROQUINE [Suspect]
     Active Substance: HYDROXYCHLOROQUINE
     Indication: Endocardial fibroelastosis
     Dosage: UNK (PATIENT^S MOTHER RECEIVED 300 MILLIGRAM/DAY)
     Route: 064
  5. ASPIRIN [Suspect]
     Active Substance: ASPIRIN
     Indication: Endocardial fibroelastosis
     Dosage: UNK (PATIENT^S MOTHER RECEIVED 75MG ONCE A DAY)
     Route: 064
  6. VITAMIN D [Suspect]
     Active Substance: VITAMIN D NOS
     Indication: Product used for unknown indication
     Dosage: UNK (AS A MATERNAL SUPPLEMENTATION THERAPY)
     Route: 064

REACTIONS (3)
  - Low birth weight baby [Unknown]
  - Foetal exposure during pregnancy [Unknown]
  - Off label use [Unknown]
